FAERS Safety Report 11650180 (Version 2)
Quarter: 2015Q4

REPORT INFORMATION
  Report Type: Spontaneous
  Country: US (occurrence: None)
  Receive Date: 20151021
  Receipt Date: 20151102
  Transmission Date: 20160304
  Serious: Yes (Other)
  Sender: FDA-Public Use
  Company Number: US-MDT-ADR-2015-01990

PATIENT
  Age: 45 Year
  Sex: Male

DRUGS (2)
  1. BACLOFEN INTRATHECAL (800 MCG/ML) [Suspect]
     Active Substance: BACLOFEN
     Dosage: 151.73 MCG/DAY
  2. BUPIVACAINE INTRATHECAL (10 MG/ML) [Suspect]
     Active Substance: BUPIVACAINE
     Dosage: 1.897 MG/DAY

REACTIONS (2)
  - Intervertebral disc injury [None]
  - Back pain [None]
